FAERS Safety Report 12474715 (Version 1)
Quarter: 2016Q2

REPORT INFORMATION
  Report Type: Spontaneous
  Country: FR (occurrence: FR)
  Receive Date: 20160617
  Receipt Date: 20160617
  Transmission Date: 20160815
  Serious: Yes (Life-Threatening)
  Sender: FDA-Public Use
  Company Number: FR-ASTRAZENECA-2016SE65737

PATIENT
  Age: 26012 Day
  Sex: Male

DRUGS (16)
  1. XARELTO [Concomitant]
     Active Substance: RIVAROXABAN
     Dosage: 20.0MG UNKNOWN
  2. CO-KENZEN [Concomitant]
  3. DETENSIEL [Concomitant]
     Active Substance: BISOPROLOL FUMARATE
  4. IXPRIM [Concomitant]
     Active Substance: ACETAMINOPHEN\TRAMADOL HYDROCHLORIDE
  5. SERESTA [Concomitant]
     Active Substance: OXAZEPAM
  6. TAHOR [Concomitant]
     Active Substance: ATORVASTATIN CALCIUM
     Dosage: 40.0MG UNKNOWN
  7. DIAMICRON [Concomitant]
     Active Substance: GLICLAZIDE
  8. ALLOPURINOL. [Concomitant]
     Active Substance: ALLOPURINOL
  9. INEXIUM [Suspect]
     Active Substance: ESOMEPRAZOLE
     Dosage: 40.0MG UNKNOWN
     Route: 048
     Dates: end: 20160512
  10. SEROPLEX [Suspect]
     Active Substance: ESCITALOPRAM OXALATE
     Indication: DEPRESSION
     Route: 048
     Dates: end: 20160512
  11. LYRICA [Concomitant]
     Active Substance: PREGABALIN
  12. VICTOZA [Concomitant]
     Active Substance: LIRAGLUTIDE
  13. BETAGAN [Concomitant]
     Active Substance: LEVOBUNOLOL HYDROCHLORIDE
     Route: 047
  14. STAGID [Concomitant]
     Active Substance: METFORMIN PAMOATE
  15. XATRAL [Concomitant]
     Active Substance: ALFUZOSIN
  16. DOLIPRANE [Concomitant]
     Active Substance: ACETAMINOPHEN

REACTIONS (4)
  - Diarrhoea [Unknown]
  - Urticaria [Not Recovered/Not Resolved]
  - Inappropriate antidiuretic hormone secretion [Recovered/Resolved]
  - Candida infection [Unknown]

NARRATIVE: CASE EVENT DATE: 20160510
